FAERS Safety Report 23601535 (Version 1)
Quarter: 2024Q1

REPORT INFORMATION
  Report Type: Spontaneous
  Country: ES (occurrence: ES)
  Receive Date: 20240306
  Receipt Date: 20240306
  Transmission Date: 20240410
  Serious: Yes (Other)
  Sender: FDA-Public Use
  Company Number: None

PATIENT
  Age: 28 Year
  Sex: Male

DRUGS (2)
  1. ADALIMUMAB [Suspect]
     Active Substance: ADALIMUMAB\ISOPROPYL ALCOHOL
     Indication: Ankylosing spondylitis
     Route: 058
     Dates: start: 202210, end: 202308
  2. COSENTYX [Suspect]
     Active Substance: SECUKINUMAB
     Indication: Ankylosing spondylitis
     Route: 058
     Dates: start: 202308, end: 202312

REACTIONS (2)
  - Concomitant disease aggravated [Recovered/Resolved]
  - Paranoia [Recovered/Resolved]

NARRATIVE: CASE EVENT DATE: 20230801
